FAERS Safety Report 8328993-0 (Version None)
Quarter: 2012Q2

REPORT INFORMATION
  Report Type: 
  Country: None (occurrence: None)
  Receive Date: 20120502
  Receipt Date: 20120425
  Transmission Date: 20120825
  Serious: Yes (Hospitalization)
  Sender: FDA-Public Use
  Company Number: JP-B.I. PHARMACEUTICALS,INC./RIDGEFIELD-2012-BP-09642NB

PATIENT
  Sex: Female
  Weight: 49 kg

DRUGS (8)
  1. DICLOFENAC SODIUM [Suspect]
     Indication: PAIN
     Route: 065
     Dates: start: 20111010, end: 20120303
  2. VERAPAMIL HCL [Concomitant]
     Dosage: 80 MG
     Route: 048
     Dates: start: 20041124
  3. LANIRAPID [Concomitant]
     Dosage: 0.05 MG
     Route: 048
     Dates: start: 20040206
  4. CILOSTAZOL [Suspect]
     Indication: CEREBRAL INFARCTION
     Dosage: 100 MG
     Route: 048
     Dates: start: 20040206, end: 20120303
  5. GASMOTIN [Concomitant]
     Dosage: 10 MG
     Route: 048
     Dates: start: 20080528
  6. ADEROXAL [Concomitant]
     Dosage: 1 G
     Route: 048
     Dates: start: 20080528
  7. PRADAXA [Suspect]
     Indication: ATRIAL FIBRILLATION
     Dosage: 220 MG
     Route: 048
     Dates: start: 20110401, end: 20120101
  8. PRADAXA [Suspect]
     Dosage: 220 MG
     Route: 048
     Dates: start: 20120101

REACTIONS (9)
  - CONTUSION [None]
  - DYSARTHRIA [None]
  - POLLAKIURIA [None]
  - LOWER GASTROINTESTINAL HAEMORRHAGE [None]
  - GAIT DISTURBANCE [None]
  - CONSTIPATION [None]
  - MALAISE [None]
  - FALL [None]
  - BACK PAIN [None]
